FAERS Safety Report 20235589 (Version 1)
Quarter: 2021Q4

REPORT INFORMATION
  Report Type: Spontaneous
  Country: GB (occurrence: GB)
  Receive Date: 20211228
  Receipt Date: 20211228
  Transmission Date: 20220303
  Serious: Yes (Disabling, Congenital Anomaly)
  Sender: FDA-Public Use
  Company Number: None

PATIENT
  Age: 9 Year
  Sex: Male

DRUGS (2)
  1. QUETIAPINE FUMARATE [Suspect]
     Active Substance: QUETIAPINE FUMARATE
     Indication: Ill-defined disorder
     Dosage: THE REPORTER WAS ON 400MG OF SEROQUEL AND IT WAS HALVED TO 200MG AT 8 WEEKS GESTATION;
     Route: 048
     Dates: start: 20040407
  2. QUETIAPINE FUMARATE [Suspect]
     Active Substance: QUETIAPINE FUMARATE
     Dosage: THE REPORTER WAS ON 400MG OF SEROQUEL AND IT WAS HALVED TO 200MG AT 8 WEEKS GESTATION;
     Route: 048
     Dates: end: 20120502

REACTIONS (7)
  - Autism spectrum disorder [Not Recovered/Not Resolved]
  - Deafness [Recovered/Resolved]
  - Sensory processing disorder [Not Recovered/Not Resolved]
  - Cardiac murmur [Recovering/Resolving]
  - Atrial septal defect [Recovering/Resolving]
  - Developmental delay [Not Recovered/Not Resolved]
  - Medication error [Unknown]

NARRATIVE: CASE EVENT DATE: 20120712
